FAERS Safety Report 14762806 (Version 1)
Quarter: 2018Q2

REPORT INFORMATION
  Report Type: Spontaneous
  Country: FR (occurrence: FR)
  Receive Date: 20180416
  Receipt Date: 20180416
  Transmission Date: 20180711
  Serious: Yes (Other)
  Sender: FDA-Public Use
  Company Number: FR-CONCORDIA PHARMACEUTICALS INC.-E2B_00011100

PATIENT
  Age: 72 Year
  Sex: Male
  Weight: 77 kg

DRUGS (2)
  1. LEVOFLOXACINE MYLAN 500 MG, COMPRIME PELLICULE SECABLE [Suspect]
     Active Substance: LEVOFLOXACIN
     Indication: LUNG DISORDER
     Route: 048
     Dates: start: 20180213, end: 20180223
  2. PREDNISOLONE. [Suspect]
     Active Substance: PREDNISOLONE
     Indication: LUNG DISORDER
     Route: 048
     Dates: start: 20180213, end: 20180215

REACTIONS (7)
  - Sleep disorder [Recovering/Resolving]
  - Urticaria [Recovered/Resolved]
  - Tendonitis [Recovering/Resolving]
  - Palpitations [Recovered/Resolved]
  - Anxiety [Recovering/Resolving]
  - Hypertension [Recovered/Resolved]
  - Tremor [Recovering/Resolving]

NARRATIVE: CASE EVENT DATE: 201802
